FAERS Safety Report 10202154 (Version 4)
Quarter: 2015Q1

REPORT INFORMATION
  Report Type: Spontaneous
  Country: US (occurrence: US)
  Receive Date: 20140528
  Receipt Date: 20150121
  Transmission Date: 20150720
  Serious: Yes (Hospitalization, Other)
  Sender: FDA-Public Use
  Company Number: US-GLAXOSMITHKLINE-A1074759A

PATIENT
  Sex: Male
  Weight: 63.39 kg

DRUGS (8)
  1. MEGESTROL [Concomitant]
     Active Substance: MEGESTROL
  2. LOSARTAN [Concomitant]
     Active Substance: LOSARTAN
  3. PREDNISONE. [Concomitant]
     Active Substance: PREDNISONE
  4. MULTIVITAMIN [Concomitant]
     Active Substance: VITAMINS
  5. TYKERB [Suspect]
     Active Substance: LAPATINIB DITOSYLATE
     Indication: LUNG NEOPLASM MALIGNANT
     Dosage: 250 MG TABLETS, 4 TABLETS DAILY, 1000 MG DAILYRESUMED AT REDUCED DOSE OF 2 TABS (500 MG) DAILY
     Route: 065
  6. SYNTHROID [Concomitant]
     Active Substance: LEVOTHYROXINE SODIUM
  7. LOVENOX [Concomitant]
     Active Substance: ENOXAPARIN SODIUM
  8. TYKERB [Suspect]
     Active Substance: LAPATINIB DITOSYLATE
     Dosage: 1000 MG, QD
     Route: 048
     Dates: start: 20140429

REACTIONS (5)
  - Pulmonary thrombosis [Unknown]
  - Ill-defined disorder [Unknown]
  - Pneumonia [Unknown]
  - Feeling abnormal [Unknown]
  - Speech disorder [Unknown]
